FAERS Safety Report 11067497 (Version 1)
Quarter: 2015Q2

REPORT INFORMATION
  Report Type: Report from Study
  Country: CO (occurrence: CO)
  Receive Date: 20150427
  Receipt Date: 20150427
  Transmission Date: 20150821
  Serious: Yes (Death, Other)
  Sender: FDA-Public Use
  Company Number: CO-AMGEN-COLSL2015039957

PATIENT
  Age: 66 Year
  Sex: Female

DRUGS (3)
  1. VECTIBIX [Suspect]
     Active Substance: PANITUMUMAB
     Indication: N-RAS GENE MUTATION
  2. VECTIBIX [Suspect]
     Active Substance: PANITUMUMAB
     Indication: COLORECTAL CANCER METASTATIC
     Dosage: UNK, EVERY 15 DAYS
     Route: 042
     Dates: start: 20140516
  3. VECTIBIX [Suspect]
     Active Substance: PANITUMUMAB
     Indication: K-RAS GENE MUTATION

REACTIONS (1)
  - Death [Fatal]
